FAERS Safety Report 14014308 (Version 1)
Quarter: 2017Q3

REPORT INFORMATION
  Report Type: Spontaneous
  Country: US (occurrence: US)
  Receive Date: 20170926
  Receipt Date: 20170926
  Transmission Date: 20171128
  Serious: Yes (Disabling, Other)
  Sender: FDA-Public Use
  Company Number: None

PATIENT
  Sex: Male
  Weight: 76.5 kg

DRUGS (3)
  1. BACLOFEN. [Concomitant]
     Active Substance: BACLOFEN
  2. RILUZOLE. [Concomitant]
     Active Substance: RILUZOLE
  3. EDARAVONE ARAVON [Suspect]
     Active Substance: EDARAVONE
     Indication: AMYOTROPHIC LATERAL SCLEROSIS
     Dosage: QUANTITY:2 20 ML AMPOULE;?
     Route: 042
     Dates: start: 20170626, end: 20170918

REACTIONS (5)
  - Nasopharyngitis [None]
  - Muscular weakness [None]
  - Gait disturbance [None]
  - Dyspnoea [None]
  - Nasal inflammation [None]

NARRATIVE: CASE EVENT DATE: 20170703
